FAERS Safety Report 5363384-6 (Version None)
Quarter: 2007Q2

REPORT INFORMATION
  Report Type: 
  Country: None (occurrence: None)
  Receive Date: 20070615
  Receipt Date: 20070607
  Transmission Date: 20071010
  Serious: Yes (Hospitalization, Disabling)
  Sender: FDA-Public Use
  Company Number: 2007-159668-NL

PATIENT
  Age: 15 Year
  Sex: Female

DRUGS (6)
  1. DEXAMETHASONE 0.5MG TAB [Suspect]
     Indication: ACUTE LYMPHOCYTIC LEUKAEMIA
     Dosage: 4 MG BID, ORAL
     Route: 048
     Dates: start: 20040418
  2. VINCRISTINE [Suspect]
     Dosage: INTRAVENOUS (NOS)
     Route: 042
     Dates: start: 20040818
  3. COTRIM [Concomitant]
  4. FLUCONAZOLE [Concomitant]
  5. MERCAPTOPURINE [Concomitant]
  6. METHOTREXATE [Concomitant]

REACTIONS (6)
  - FUNGAL INFECTION [None]
  - GAIT DISTURBANCE [None]
  - OSTEONECROSIS [None]
  - PAIN IN EXTREMITY [None]
  - PERONEAL NERVE PALSY [None]
  - PROPHYLAXIS [None]
